FAERS Safety Report 7929551-X (Version None)
Quarter: 2011Q4

REPORT INFORMATION
  Report Type: 
  Country: None (occurrence: None)
  Receive Date: 20111024
  Receipt Date: 20110824
  Transmission Date: 20120403
  Serious: Yes (Other)
  Sender: FDA-Public Use
  Company Number: 2011SP040098

PATIENT
  Age: 58 Year
  Sex: Female

DRUGS (4)
  1. HYDROCHLOROTHIAZIDE [Concomitant]
  2. DULERA ORAL INHALATION [Suspect]
     Indication: ASTHMA
     Dosage: 200 MCG;BID;INH
     Route: 055
     Dates: start: 20110101, end: 20110820
  3. ALBUTEROL [Concomitant]
  4. XANAX [Concomitant]

REACTIONS (6)
  - MALAISE [None]
  - INSOMNIA [None]
  - ANXIETY [None]
  - PALPITATIONS [None]
  - DIZZINESS [None]
  - HYPERTENSION [None]
